FAERS Safety Report 8787142 (Version 1)
Quarter: 2012Q4

REPORT INFORMATION
  Report Type: 
  Country: CA (occurrence: CA)
  Receive Date: 20120914
  Receipt Date: 20120914
  Transmission Date: 20130627
  Serious: Yes (Death)
  Sender: FDA-Public Use
  Company Number: CA-ELI_LILLY_AND_COMPANY-CA201209002788

PATIENT
  Age: 85 Year
  Sex: Female

DRUGS (1)
  1. CYMBALTA [Suspect]
     Dosage: 30 mg, unknown

REACTIONS (4)
  - Death [Fatal]
  - Hepatic steatosis [Not Recovered/Not Resolved]
  - Cardiac disorder [Unknown]
  - Hepatic enzyme increased [Unknown]
